FAERS Safety Report 15094113 (Version 1)
Quarter: 2018Q2

REPORT INFORMATION
  Report Type: Report from Study
  Country: US (occurrence: US)
  Receive Date: 20180630
  Receipt Date: 20180630
  Transmission Date: 20180711
  Serious: No
  Sender: FDA-Public Use
  Company Number: PHEH2018US025335

PATIENT
  Sex: Male

DRUGS (1)
  1. OMNITROPE [Suspect]
     Active Substance: SOMATROPIN
     Indication: PRODUCT USED FOR UNKNOWN INDICATION
     Dosage: 3.1 MG, QD
     Route: 058

REACTIONS (5)
  - Osteitis [Unknown]
  - Dizziness [Unknown]
  - Diarrhoea [Unknown]
  - Anxiety [Unknown]
  - Musculoskeletal discomfort [Unknown]
